FAERS Safety Report 9624498 (Version 2)
Quarter: 2013Q4

REPORT INFORMATION
  Report Type: Spontaneous
  Country: CN (occurrence: CN)
  Receive Date: 20131015
  Receipt Date: 20131022
  Transmission Date: 20140711
  Serious: Yes (Hospitalization)
  Sender: FDA-Public Use
  Company Number: PHHY2013CN112884

PATIENT
  Age: 47 Year
  Sex: Male

DRUGS (1)
  1. ACETYLSALICYLIC ACID [Suspect]
     Indication: CORONARY ARTERY DISEASE
     Route: 048

REACTIONS (11)
  - Anaemia megaloblastic [Recovering/Resolving]
  - Dizziness [Unknown]
  - Fatigue [Unknown]
  - Palpitations [Unknown]
  - Gastritis erosive [Recovered/Resolved]
  - Intestinal ulcer [Recovered/Resolved]
  - Gastrointestinal haemorrhage [Recovered/Resolved]
  - Faeces discoloured [Recovered/Resolved]
  - Gastritis atrophic [Recovered/Resolved]
  - Oral mucosa atrophy [Recovered/Resolved]
  - Atrophic glossitis [Recovered/Resolved]
